FAERS Safety Report 7296325-5 (Version None)
Quarter: 2011Q1

REPORT INFORMATION
  Report Type: 
  Country: None (occurrence: None)
  Receive Date: 20110211
  Receipt Date: 20110211
  Transmission Date: 20110831
  Serious: No
  Sender: FDA-Public Use
  Company Number: None

PATIENT
  Sex: Female
  Weight: 67.7 kg

DRUGS (3)
  1. DOXORUBICIN HYDROCHLORIDE [Suspect]
     Dosage: 427 MG
     Dates: end: 20101104
  2. TAXOL [Suspect]
     Dosage: 1562 MG
     Dates: end: 20100916
  3. CYCLOPHOSPHAMIDE [Suspect]
     Dosage: 4266 MG
     Dates: end: 20101104

REACTIONS (1)
  - WHITE BLOOD CELL COUNT ABNORMAL [None]
